FAERS Safety Report 22645907 (Version 1)
Quarter: 2023Q2

REPORT INFORMATION
  Report Type: Spontaneous
  Country: US (occurrence: US)
  Receive Date: 20230627
  Receipt Date: 20230627
  Transmission Date: 20230722
  Serious: No
  Sender: FDA-Public Use
  Company Number: US-INCYTE CORPORATION-2023IN006476

PATIENT

DRUGS (1)
  1. JAKAFI [Suspect]
     Active Substance: RUXOLITINIB
     Indication: Myeloproliferative neoplasm
     Dosage: 10MG TWICE DAILY ON MONDAY AND THURSDAY, 10MG ONCE DAILY ALL OTHER DAYS OF THE WEEK
     Route: 048
     Dates: start: 20210901

REACTIONS (2)
  - Back pain [Unknown]
  - Off label use [Unknown]
